FAERS Safety Report 24030078 (Version 3)
Quarter: 2024Q3

REPORT INFORMATION
  Report Type: Spontaneous
  Country: US (occurrence: US)
  Receive Date: 20240628
  Receipt Date: 20240820
  Transmission Date: 20241016
  Serious: Yes (Other)
  Sender: PFIZER
  Company Number: US-PFIZER INC-202400200821

PATIENT
  Age: 69 Year
  Sex: Male

DRUGS (2)
  1. IBRANCE [Suspect]
     Active Substance: PALBOCICLIB
     Dosage: 125 MG, CYCLIC (1 TABLET DAILY BY MOUTH ON DAYS 1 THROUGH 21 OF A 28 DAY CYCLE)
     Route: 048
     Dates: start: 202402
  2. IBRANCE [Suspect]
     Active Substance: PALBOCICLIB
     Dosage: 1 TABLET DAILY ON DAYS 1 THROUGH 21 OF A 28 DAY CYCLE

REACTIONS (8)
  - Cystitis [Unknown]
  - Neutrophil count abnormal [Unknown]
  - Nausea [Not Recovered/Not Resolved]
  - White blood cell count decreased [Unknown]
  - Headache [Not Recovered/Not Resolved]
  - Alopecia [Not Recovered/Not Resolved]
  - Therapeutic response unexpected [Unknown]
  - Lymphadenopathy [Recovered/Resolved]

NARRATIVE: CASE EVENT DATE: 20240101
